FAERS Safety Report 4814244-8 (Version None)
Quarter: 2005Q4

REPORT INFORMATION
  Report Type: 
  Country: None (occurrence: None)
  Receive Date: 20051028
  Receipt Date: 20050725
  Transmission Date: 20060501
  Serious: No
  Sender: FDA-Public Use
  Company Number: US-GLAXOSMITHKLINE-A0567565A

PATIENT
  Age: 71 Year
  Sex: Female

DRUGS (9)
  1. ADVAIR DISKUS 100/50 [Suspect]
     Indication: DRUG USE FOR UNKNOWN INDICATION
     Dosage: 1PUFF TWICE PER DAY
     Route: 055
  2. QUININE [Concomitant]
  3. VICODIN [Concomitant]
  4. TAMOXIFEN [Concomitant]
  5. CARDIZEM [Concomitant]
  6. AMBIEN [Concomitant]
  7. HYDROCHLOROTHIAZIDE [Concomitant]
  8. FLOVENT [Concomitant]
  9. COMBIVENT [Concomitant]

REACTIONS (4)
  - DRUG INEFFECTIVE [None]
  - DYSGEUSIA [None]
  - DYSPNOEA [None]
  - PHARMACEUTICAL PRODUCT COMPLAINT [None]
